FAERS Safety Report 4522130-6 (Version None)
Quarter: 2004Q4

REPORT INFORMATION
  Report Type: 
  Country: None (occurrence: None)
  Receive Date: 20041207
  Receipt Date: 20041122
  Transmission Date: 20050328
  Serious: Yes (Hospitalization, Other)
  Sender: FDA-Public Use
  Company Number: 2004-04967

PATIENT
  Age: 53 Year
  Sex: Male
  Weight: 88.4 kg

DRUGS (4)
  1. NICOTINE POLACRILEX [Suspect]
     Indication: SMOKING CESSATION THERAPY
     Dosage: SEE IMAGE
     Route: 002
     Dates: start: 20030701, end: 20031001
  2. NICOTINE POLACRILEX [Suspect]
     Indication: SMOKING CESSATION THERAPY
     Dosage: SEE IMAGE
     Route: 002
     Dates: start: 20041101
  3. NICOTINE POLACRILEX [Suspect]
     Indication: SMOKING CESSATION THERAPY
     Dosage: 2 PIECE, TO START WITH, BUCCAL
     Route: 002
  4. NICORETTE [Suspect]
     Dosage: 4 PIECE AT A TIME, 1 BOX Q 2DAYS, BUCCAL
     Route: 002
     Dates: start: 20030701

REACTIONS (5)
  - MYOCARDIAL INFARCTION [None]
  - NICOTINE DEPENDENCE [None]
  - OVERDOSE [None]
  - SELF-MEDICATION [None]
  - STRESS SYMPTOMS [None]
